FAERS Safety Report 5973884-3 (Version None)
Quarter: 2008Q4

REPORT INFORMATION
  Report Type: 
  Country: None (occurrence: None)
  Receive Date: 20081125
  Receipt Date: 20081111
  Transmission Date: 20090506
  Serious: Yes (Hospitalization)
  Sender: FDA-Public Use
  Company Number: POMP-1000387

PATIENT
  Age: 15 Month
  Sex: Male
  Weight: 9.6 kg

DRUGS (1)
  1. MYOZYME [Suspect]
     Indication: GLYCOGEN STORAGE DISEASE TYPE II
     Dosage: 180 MG, Q2W, INTRAVENOUS
     Route: 042
     Dates: start: 20071217

REACTIONS (5)
  - ATRIAL SEPTAL DEFECT [None]
  - HYPERTROPHIC CARDIOMYOPATHY [None]
  - MITRAL VALVE INCOMPETENCE [None]
  - NO THERAPEUTIC RESPONSE [None]
  - PERICARDIAL EFFUSION [None]
